FAERS Safety Report 12517826 (Version 1)
Quarter: 2016Q2

REPORT INFORMATION
  Report Type: Spontaneous
  Country: JP (occurrence: JP)
  Receive Date: 20160630
  Receipt Date: 20160630
  Transmission Date: 20160815
  Serious: Yes (Other)
  Sender: FDA-Public Use
  Company Number: JP-CELGENEUS-JPN-2016065152

PATIENT

DRUGS (3)
  1. ABRAXANE [Suspect]
     Active Substance: PACLITAXEL
     Indication: BREAST CANCER METASTATIC
     Route: 065
  2. ABRAXANE [Suspect]
     Active Substance: PACLITAXEL
     Dosage: 220-260 MG/M2
     Route: 065
  3. GEMCITABINE [Suspect]
     Active Substance: GEMCITABINE\GEMCITABINE HYDROCHLORIDE
     Indication: BREAST CANCER METASTATIC
     Route: 065

REACTIONS (21)
  - Vomiting [Unknown]
  - Alopecia [Unknown]
  - Neutropenia [Unknown]
  - Thrombocytopenia [Unknown]
  - Constipation [Unknown]
  - Urticaria [Unknown]
  - Arthritis [Unknown]
  - Myositis [Unknown]
  - Aspartate aminotransferase increased [Unknown]
  - Anaemia [Unknown]
  - Dysgeusia [Unknown]
  - Pyrexia [Unknown]
  - Vasculitis [Unknown]
  - Leukopenia [Unknown]
  - Diarrhoea [Unknown]
  - Alanine aminotransferase increased [Unknown]
  - Fatigue [Unknown]
  - Nausea [Unknown]
  - Stomatitis [Unknown]
  - Neuropathy peripheral [Unknown]
  - Decreased appetite [Unknown]
